FAERS Safety Report 9550831 (Version 1)
Quarter: 2013Q3

REPORT INFORMATION
  Report Type: Spontaneous
  Country: US (occurrence: US)
  Receive Date: 20130924
  Receipt Date: 20130924
  Transmission Date: 20140515
  Serious: No
  Sender: FDA-Public Use
  Company Number: US-SANOFI-AVENTIS-2013SA039228

PATIENT
  Age: 58 Year
  Sex: Female
  Weight: 52.2 kg

DRUGS (10)
  1. AUBAGIO [Suspect]
     Indication: MULTIPLE SCLEROSIS
     Dosage: START DATE: 16 DAYS AGO
     Route: 048
     Dates: end: 20130505
  2. ALL OTHER THERAPEUTIC PRODUCTS [Suspect]
     Route: 048
  3. GABAPENTIN [Concomitant]
  4. BACLOFEN [Concomitant]
  5. QUININE SULFATE [Concomitant]
  6. SINGULAIR [Concomitant]
  7. FOSAMAX [Concomitant]
  8. COMBIVENT [Concomitant]
  9. VITAMIN D [Concomitant]
     Dosage: DOSE:50000 UNIT(S)
  10. GILENYA [Concomitant]

REACTIONS (3)
  - Headache [Unknown]
  - Discomfort [Not Recovered/Not Resolved]
  - Hyperhidrosis [Unknown]
